FAERS Safety Report 18588511 (Version 2)
Quarter: 2021Q1

REPORT INFORMATION
  Report Type: Spontaneous
  Country: US (occurrence: US)
  Receive Date: 20201207
  Receipt Date: 20210107
  Transmission Date: 20210419
  Serious: Yes (Other)
  Sender: FDA-Public Use
  Company Number: US-GILEAD-2020-0507775

PATIENT
  Age: 77 Year
  Sex: Female
  Weight: 58.9 kg

DRUGS (12)
  1. SOLU?MEDROL [Concomitant]
     Active Substance: METHYLPREDNISOLONE SODIUM SUCCINATE
     Dosage: 40 MG Q 8H
     Route: 042
     Dates: start: 20200710, end: 20200720
  2. DECADRON [DEXAMETHASONE PHOSPHATE] [Concomitant]
     Dosage: 6 MG, QD
     Route: 048
     Dates: start: 20200729
  3. SOLU?MEDROL [Concomitant]
     Active Substance: METHYLPREDNISOLONE SODIUM SUCCINATE
     Dosage: 40 MG Q12H
     Route: 042
     Dates: start: 20200720, end: 20200721
  4. DECADRON [DEXAMETHASONE PHOSPHATE] [Concomitant]
     Dosage: 6 MG, QD
     Route: 048
     Dates: start: 20200722
  5. AZITHROMYCIN ANHYDROUS. [Concomitant]
     Active Substance: AZITHROMYCIN ANHYDROUS
     Indication: EVIDENCE BASED TREATMENT
     Dosage: 500 MG
     Route: 042
     Dates: start: 20200710, end: 20200713
  6. OXYGEN. [Concomitant]
     Active Substance: OXYGEN
  7. VEKLURY [Suspect]
     Active Substance: REMDESIVIR
     Indication: COVID-19
     Dosage: 200 MG LOADING DOSE
     Route: 042
     Dates: start: 20200711, end: 20200711
  8. ROCEPHIN [Concomitant]
     Active Substance: CEFTRIAXONE SODIUM
     Indication: EVIDENCE BASED TREATMENT
     Dosage: UNK
     Dates: start: 20200710, end: 20200715
  9. CEFTRIAXONE. [Concomitant]
     Active Substance: CEFTRIAXONE
  10. DOXYCYCLINE. [Concomitant]
     Active Substance: DOXYCYCLINE
     Dosage: 100 MG
     Route: 048
     Dates: start: 20200713, end: 20200715
  11. VEKLURY [Suspect]
     Active Substance: REMDESIVIR
     Dosage: 100 MG, QD
     Route: 042
     Dates: start: 20200712, end: 20200713
  12. SOLU?MEDROL [Concomitant]
     Active Substance: METHYLPREDNISOLONE SODIUM SUCCINATE
     Dosage: 40 MG, QD
     Route: 042
     Dates: start: 20200723, end: 20200728

REACTIONS (1)
  - Sinus bradycardia [Recovered/Resolved]

NARRATIVE: CASE EVENT DATE: 20200713
